FAERS Safety Report 9595589 (Version 1)
Quarter: 2013Q4

REPORT INFORMATION
  Report Type: Spontaneous
  Country: US (occurrence: US)
  Receive Date: 20131004
  Receipt Date: 20131004
  Transmission Date: 20140711
  Serious: No
  Sender: FDA-Public Use
  Company Number: US-PURDUE-USA-2012-0093378

PATIENT
  Age: 53 Year
  Sex: Male

DRUGS (2)
  1. BUTRANS [Suspect]
     Indication: NEUROPATHY PERIPHERAL
     Dosage: 20 MCG, UNK
     Route: 062
     Dates: start: 201104
  2. OXYCODONE HCL IR CAPSULES [Concomitant]
     Indication: BREAKTHROUGH PAIN
     Dosage: 15 MG, 2-4 PILLS
     Route: 048
     Dates: start: 2010

REACTIONS (3)
  - Application site haemorrhage [Unknown]
  - Application site erythema [Not Recovered/Not Resolved]
  - Application site exfoliation [Unknown]
